FAERS Safety Report 24133104 (Version 2)
Quarter: 2025Q1

REPORT INFORMATION
  Report Type: Spontaneous
  Country: CN (occurrence: CN)
  Receive Date: 20240724
  Receipt Date: 20250207
  Transmission Date: 20250409
  Serious: Yes (Other)
  Sender: PHARMACOSMOS A/S
  Company Number: CN-ADR-3505021027230202401215

PATIENT
  Age: 75 Year
  Sex: Male
  Weight: 50.95 kg

DRUGS (8)
  1. TRILACICLIB [Suspect]
     Active Substance: TRILACICLIB
     Indication: Oesophageal squamous cell carcinoma
     Dates: start: 20240612, end: 20240612
  2. TISLELIZUMAB [Suspect]
     Active Substance: TISLELIZUMAB
     Indication: Oesophageal squamous cell carcinoma
     Dates: start: 20240612, end: 20240612
  3. IRINOTECAN HYDROCHLORIDE [Suspect]
     Active Substance: IRINOTECAN HYDROCHLORIDE
     Indication: Oesophageal squamous cell carcinoma
     Dates: start: 20240604, end: 20240604
  4. IRINOTECAN HYDROCHLORIDE [Suspect]
     Active Substance: IRINOTECAN HYDROCHLORIDE
     Indication: Oesophageal squamous cell carcinoma
     Dates: start: 20240612, end: 20240612
  5. SODIUM CHLORIDE [Concomitant]
     Active Substance: SODIUM CHLORIDE
     Indication: Vehicle solution use
     Dates: start: 20240604, end: 20240604
  6. SODIUM CHLORIDE [Concomitant]
     Active Substance: SODIUM CHLORIDE
     Indication: Vehicle solution use
     Dates: start: 20240612, end: 20240612
  7. SODIUM CHLORIDE [Concomitant]
     Active Substance: SODIUM CHLORIDE
     Indication: Vehicle solution use
     Dates: start: 20240612, end: 20240612
  8. SODIUM CHLORIDE [Concomitant]
     Active Substance: SODIUM CHLORIDE
     Indication: Vehicle solution use
     Dates: start: 20240612, end: 20240612

REACTIONS (1)
  - Bicytopenia [Recovering/Resolving]

NARRATIVE: CASE EVENT DATE: 20240614
